FAERS Safety Report 24379251 (Version 3)
Quarter: 2024Q4

REPORT INFORMATION
  Report Type: Spontaneous
  Country: US (occurrence: US)
  Receive Date: 20240930
  Receipt Date: 20241030
  Transmission Date: 20250115
  Serious: No
  Sender: JOHNSON AND JOHNSON
  Company Number: US-JNJFOC-20240951953

PATIENT
  Age: 39 Year
  Sex: Female

DRUGS (1)
  1. SIMPONI [Suspect]
     Active Substance: GOLIMUMAB
     Indication: Product used for unknown indication
     Dosage: STRENGTH: 50.00 MG / 0.50 ML
     Route: 058

REACTIONS (4)
  - Device issue [Unknown]
  - Product dose omission issue [Unknown]
  - Swelling [Unknown]
  - Hypokinesia [Unknown]

NARRATIVE: CASE EVENT DATE: 20240918
